FAERS Safety Report 11314248 (Version 1)
Quarter: 2015Q3

REPORT INFORMATION
  Report Type: Spontaneous
  Country: GB (occurrence: UG)
  Receive Date: 20150727
  Receipt Date: 20150727
  Transmission Date: 20151125
  Serious: Yes (Other)
  Sender: FDA-Public Use
  Company Number: GB-GLAXOSMITHKLINE-UG2015106713

PATIENT
  Age: 49 Year
  Sex: Male

DRUGS (3)
  1. ACICLOVIR [Suspect]
     Active Substance: ACYCLOVIR
     Indication: HERPES SIMPLEX
     Dosage: HIGH-DOSE
     Route: 065
  2. RALTEGRAVIR. [Suspect]
     Active Substance: RALTEGRAVIR
     Indication: HERPES SIMPLEX
     Route: 065
  3. DARUNAVIR [Suspect]
     Active Substance: DARUNAVIR
     Indication: HERPES SIMPLEX
     Dosage: BD-BOOSTED
     Route: 065

REACTIONS (3)
  - Drug resistance [Recovered/Resolved]
  - Kaposi^s sarcoma [Unknown]
  - Nephropathy [Unknown]
